FAERS Safety Report 5033700-3 (Version None)
Quarter: 2006Q2

REPORT INFORMATION
  Report Type: 
  Country: None (occurrence: None)
  Receive Date: 20060623
  Receipt Date: 20060613
  Transmission Date: 20061013
  Serious: Yes (Other)
  Sender: FDA-Public Use
  Company Number: US-GILEAD-2006-0009746

PATIENT
  Age: 43 Year
  Sex: Male

DRUGS (11)
  1. TRUVADA [Suspect]
     Indication: HIV INFECTION
     Dates: start: 20041201
  2. COUMADIN [Suspect]
     Indication: THROMBOSIS
     Dates: start: 20060501
  3. COUMADIN [Suspect]
     Dates: start: 19960101, end: 19960101
  4. SUSTIVA [Concomitant]
     Indication: HIV INFECTION
     Dates: start: 20041201
  5. PENTASA [Concomitant]
     Indication: CROHN'S DISEASE
  6. DAPSONE [Concomitant]
     Dates: start: 20041201
  7. DOXAZOSIN [Concomitant]
  8. NEXIUM [Concomitant]
  9. ZOLOFT [Concomitant]
     Indication: DEPRESSION
  10. FIBERCON [Concomitant]
  11. CHOLESTYRAMINE [Concomitant]
     Dates: start: 20060501

REACTIONS (11)
  - ARTHRALGIA [None]
  - ASTHENIA [None]
  - DIZZINESS [None]
  - DRUG INTERACTION [None]
  - FATIGUE [None]
  - FEELING HOT [None]
  - HYPOAESTHESIA [None]
  - NIGHT SWEATS [None]
  - OEDEMA PERIPHERAL [None]
  - PARAESTHESIA [None]
  - THROMBOSIS [None]
